FAERS Safety Report 17052480 (Version 1)
Quarter: 2019Q4

REPORT INFORMATION
  Report Type: Spontaneous
  Country: US (occurrence: US)
  Receive Date: 20191021
  Receipt Date: 20191021
  Transmission Date: 20200122
  Serious: Yes (Hospitalization)
  Sender: FDA-Public Use
  Company Number: None

PATIENT
  Sex: Female
  Weight: 59 kg

DRUGS (1)
  1. ARIMIDEX [Suspect]
     Active Substance: ANASTROZOLE

REACTIONS (9)
  - Asthenia [None]
  - Blood urea increased [None]
  - Gastritis [None]
  - Tremor [None]
  - Ulcer [None]
  - Melaena [None]
  - Blood glucose increased [None]
  - Anaemia [None]
  - Duodenitis [None]

NARRATIVE: CASE EVENT DATE: 20180317
